FAERS Safety Report 4950655-8 (Version None)
Quarter: 2006Q1

REPORT INFORMATION
  Report Type: 
  Country: None (occurrence: None)
  Receive Date: 20060322
  Receipt Date: 20060313
  Transmission Date: 20060701
  Serious: Yes (Other)
  Sender: FDA-Public Use
  Company Number: PHBS2006CH04016

PATIENT
  Age: 45 Year
  Sex: Female

DRUGS (2)
  1. EMSELEX EXTENDED RELEASE [Suspect]
     Indication: HYPERTONIC BLADDER
     Dosage: 1 DF, QD
     Route: 048
     Dates: start: 20051201
  2. BETASERC [Concomitant]

REACTIONS (4)
  - DEAFNESS UNILATERAL [None]
  - HEARING IMPAIRED [None]
  - MENIERE'S DISEASE [None]
  - TINNITUS [None]
